FAERS Safety Report 13825603 (Version 1)
Quarter: 2017Q3

REPORT INFORMATION
  Report Type: Spontaneous
  Country: US (occurrence: US)
  Receive Date: 20170802
  Receipt Date: 20170802
  Transmission Date: 20171127
  Serious: No
  Sender: FDA-Public Use
  Company Number: US-GLENMARK PHARMACEUTICALS-2017GMK027787

PATIENT

DRUGS (6)
  1. CYANOCOBALAMIN. [Concomitant]
     Active Substance: CYANOCOBALAMIN
     Indication: PERNICIOUS ANAEMIA
     Dosage: UNK
     Route: 065
  2. PRAVASTATIN. [Concomitant]
     Active Substance: PRAVASTATIN
     Indication: CARDIAC DISORDER
     Dosage: UNK
     Route: 048
  3. OMEPRAZOLE. [Suspect]
     Active Substance: OMEPRAZOLE
     Indication: GASTROINTESTINAL DISORDER
     Dosage: 20 MG, OD
     Route: 048
     Dates: start: 20170508
  4. LORAZEPAM. [Concomitant]
     Active Substance: LORAZEPAM
     Indication: SLEEP DISORDER
     Dosage: UNK
     Route: 048
  5. METOPROLOL. [Concomitant]
     Active Substance: METOPROLOL
     Indication: HYPERTENSION
     Dosage: UNK
     Route: 048
  6. VITAMIN D                          /00107901/ [Concomitant]
     Active Substance: ERGOCALCIFEROL
     Indication: SUPPLEMENTATION THERAPY
     Dosage: UNK
     Route: 048

REACTIONS (5)
  - Constipation [Recovering/Resolving]
  - Wrong technique in product usage process [Unknown]
  - Product substitution issue [Unknown]
  - Frequent bowel movements [Recovering/Resolving]
  - Product use in unapproved indication [Unknown]

NARRATIVE: CASE EVENT DATE: 20170508
